FAERS Safety Report 10623462 (Version 2)
Quarter: 2015Q1

REPORT INFORMATION
  Report Type: Spontaneous
  Country: GB (occurrence: GB)
  Receive Date: 20141203
  Receipt Date: 20150330
  Transmission Date: 20150720
  Serious: Yes (Other)
  Sender: FDA-Public Use
  Company Number: PHHY2014GB156336

PATIENT
  Sex: Female

DRUGS (2)
  1. PARACETAMOL [Suspect]
     Active Substance: ACETAMINOPHEN
     Indication: INFLUENZA
     Route: 065
  2. DAY NURSE (ACETAMINOPHEN\ASCORBIC ACID\DEXTROMETHORPHAN\PHENYLEPHRINE) [Suspect]
     Active Substance: ACETAMINOPHEN\ASCORBIC ACID\DEXTROMETHORPHAN\PHENYLEPHRINE
     Indication: INFLUENZA
     Route: 065

REACTIONS (9)
  - Somnolence [Recovered/Resolved]
  - Bradycardia [Recovered/Resolved]
  - Accidental overdose [Recovered/Resolved]
  - Feeling abnormal [Recovered/Resolved]
  - Chest discomfort [Recovered/Resolved]
  - Coma [Recovered/Resolved]
  - Inappropriate schedule of drug administration [Unknown]
  - Somnolence [Unknown]
  - Loss of consciousness [Recovered/Resolved]
